FAERS Safety Report 21239248 (Version 1)
Quarter: 2022Q3

REPORT INFORMATION
  Report Type: Spontaneous
  Country: US (occurrence: None)
  Receive Date: 20220819
  Receipt Date: 20220819
  Transmission Date: 20221027
  Serious: Yes (Disabling)
  Sender: FDA-Public Use
  Company Number: None

PATIENT
  Age: 48 Year
  Sex: Female
  Weight: 90 kg

DRUGS (1)
  1. XARELTO [Suspect]
     Active Substance: RIVAROXABAN
     Indication: Thrombosis
     Dosage: 1 TABLET  TWICE A DAY ORAL?
     Route: 048
     Dates: start: 20220520, end: 20220615

REACTIONS (9)
  - Balance disorder [None]
  - Limb discomfort [None]
  - Photophobia [None]
  - Visual impairment [None]
  - Paraesthesia [None]
  - Fatigue [None]
  - Hypoaesthesia oral [None]
  - Nervous system disorder [None]
  - Hypoaesthesia [None]

NARRATIVE: CASE EVENT DATE: 20220610
